FAERS Safety Report 9551890 (Version 2)
Quarter: 2013Q4

REPORT INFORMATION
  Report Type: Spontaneous
  Country: BE (occurrence: BE)
  Receive Date: 20130925
  Receipt Date: 20131024
  Transmission Date: 20140711
  Serious: Yes (Other)
  Sender: FDA-Public Use
  Company Number: BE-JNJFOC-20130913785

PATIENT
  Age: 8 Decade
  Sex: Male

DRUGS (8)
  1. XARELTO [Suspect]
     Indication: CEREBROVASCULAR ACCIDENT PROPHYLAXIS
     Route: 048
     Dates: start: 201304, end: 20130828
  2. XARELTO [Suspect]
     Indication: ARRHYTHMIA
     Route: 048
     Dates: start: 201304, end: 20130828
  3. CORDARONE [Concomitant]
     Route: 066
  4. STILNOCT [Concomitant]
     Route: 065
  5. AMOXICILLIN TRIHYDRATE [Concomitant]
     Route: 065
  6. ZOCOR [Concomitant]
     Route: 065
  7. AMLOR [Concomitant]
     Route: 065
  8. EMCONCOR [Concomitant]
     Route: 065

REACTIONS (6)
  - Intensive care [Unknown]
  - Infection [Unknown]
  - Inflammation [Unknown]
  - Subcutaneous haematoma [Unknown]
  - Aspartate aminotransferase increased [Recovered/Resolved]
  - Alanine aminotransferase increased [Recovered/Resolved]
